FAERS Safety Report 11417826 (Version 2)
Quarter: 2015Q3

REPORT INFORMATION
  Report Type: Spontaneous
  Country: US (occurrence: US)
  Receive Date: 20150825
  Receipt Date: 20150908
  Transmission Date: 20151125
  Serious: Yes (Hospitalization, Other)
  Sender: FDA-Public Use
  Company Number: US-JAZZ-2013-US-004408

PATIENT
  Sex: Female
  Weight: 82.54 kg

DRUGS (10)
  1. XYREM [Suspect]
     Active Substance: SODIUM OXYBATE
     Dosage: 4.25 G, BID
     Route: 048
     Dates: start: 201210, end: 201309
  2. XYREM [Suspect]
     Active Substance: SODIUM OXYBATE
     Indication: NARCOLEPSY
     Dosage: 2.25 G, BID
     Route: 048
     Dates: start: 201207, end: 2012
  3. XYREM [Suspect]
     Active Substance: SODIUM OXYBATE
     Dosage: UNKNOWN DOSE
     Route: 048
     Dates: start: 201508, end: 201508
  4. XYREM [Suspect]
     Active Substance: SODIUM OXYBATE
     Dosage: 4.25 G, BID
     Route: 048
     Dates: start: 201309, end: 201312
  5. SEROQUEL [Suspect]
     Active Substance: QUETIAPINE FUMARATE
     Indication: ANXIETY
  6. XYREM [Suspect]
     Active Substance: SODIUM OXYBATE
     Dosage: 4.25 G, BID
     Route: 048
     Dates: start: 201508
  7. LAMICTAL [Concomitant]
     Active Substance: LAMOTRIGINE
     Indication: AFFECTIVE DISORDER
     Dosage: UNK
     Dates: start: 2015
  8. XYREM [Suspect]
     Active Substance: SODIUM OXYBATE
     Dosage: DOSE ADJUSTMENTS
     Route: 048
  9. XYREM [Suspect]
     Active Substance: SODIUM OXYBATE
     Dosage: 4.25 G, BID
     Route: 048
     Dates: end: 2014
  10. REMERON [Suspect]
     Active Substance: MIRTAZAPINE
     Indication: ANXIETY

REACTIONS (7)
  - Menstrual disorder [Not Recovered/Not Resolved]
  - Gastric disorder [Not Recovered/Not Resolved]
  - Postpartum depression [Unknown]
  - Anxiety [Not Recovered/Not Resolved]
  - Sleep paralysis [Unknown]
  - Abortion spontaneous [Recovered/Resolved]
  - Alcohol abuse [Recovered/Resolved]

NARRATIVE: CASE EVENT DATE: 2013
